FAERS Safety Report 16608777 (Version 2)
Quarter: 2019Q3

REPORT INFORMATION
  Report Type: Spontaneous
  Country: US (occurrence: US)
  Receive Date: 20190722
  Receipt Date: 20190828
  Transmission Date: 20191004
  Serious: Yes (Hospitalization, Other)
  Sender: FDA-Public Use
  Company Number: US-PFIZER INC-2019307489

PATIENT
  Age: 55 Year
  Sex: Male
  Weight: 77.11 kg

DRUGS (3)
  1. LYRICA [Suspect]
     Active Substance: PREGABALIN
     Indication: NEUROPATHY PERIPHERAL
     Dosage: 200 MG, 2X/DAY [ONE IN THE MORNING AND ONE EVERY EVENING]
     Route: 048
  2. LYRICA [Suspect]
     Active Substance: PREGABALIN
     Dosage: UNK
     Dates: end: 201902
  3. LYRICA [Suspect]
     Active Substance: PREGABALIN
     Dosage: UNK
     Dates: end: 201903

REACTIONS (7)
  - Nightmare [Unknown]
  - Anxiety [Unknown]
  - Neuropathy peripheral [Unknown]
  - Cerebral haemorrhage [Not Recovered/Not Resolved]
  - Weight increased [Unknown]
  - Haematoma [Not Recovered/Not Resolved]
  - Muscular weakness [Unknown]
